FAERS Safety Report 15263867 (Version 1)
Quarter: 2018Q3

REPORT INFORMATION
  Report Type: Spontaneous
  Country: HU (occurrence: HU)
  Receive Date: 20180810
  Receipt Date: 20180810
  Transmission Date: 20181010
  Serious: Yes (Hospitalization)
  Sender: FDA-Public Use
  Company Number: HU-TEVA-2018-HU-937773

PATIENT
  Sex: Female

DRUGS (4)
  1. PERJETA [Suspect]
     Active Substance: PERTUZUMAB
     Dosage: MAINTAINING DOSE
     Route: 042
     Dates: start: 2017
  2. HERCEPTIN [Suspect]
     Active Substance: TRASTUZUMAB
     Indication: BREAST CANCER METASTATIC
     Route: 042
     Dates: start: 2017
  3. DOCETAXEL. [Suspect]
     Active Substance: DOCETAXEL
     Indication: BREAST CANCER METASTATIC
     Route: 042
  4. PERJETA [Suspect]
     Active Substance: PERTUZUMAB
     Dosage: LOADING DOSE
     Route: 042
     Dates: start: 2017

REACTIONS (4)
  - Dyspnoea [Recovered/Resolved]
  - Dry skin [Recovered/Resolved]
  - Pleural thickening [Not Recovered/Not Resolved]
  - Peripheral swelling [Recovered/Resolved]

NARRATIVE: CASE EVENT DATE: 20171103
